FAERS Safety Report 7497675-X (Version None)
Quarter: 2011Q2

REPORT INFORMATION
  Report Type: 
  Country: None (occurrence: None)
  Receive Date: 20110523
  Receipt Date: 20110512
  Transmission Date: 20111010
  Serious: Yes (Hospitalization)
  Sender: FDA-Public Use
  Company Number: GB-ASTRAZENECA-2011SE28265

PATIENT
  Age: 72 Year
  Sex: Male

DRUGS (5)
  1. ALBUTEROL [Suspect]
     Route: 065
  2. ITRACONAZOLE [Suspect]
     Route: 065
  3. ITRACONAZOLE [Suspect]
     Indication: ASPERGILLOSIS
     Route: 065
  4. FORMOTEROL FUMERATE [Suspect]
     Route: 055
  5. FLUTICASONE PROPIONATE [Suspect]
     Route: 055

REACTIONS (2)
  - TOXIC NEUROPATHY [None]
  - OEDEMA PERIPHERAL [None]
